FAERS Safety Report 8491920-X (Version None)
Quarter: 2012Q3

REPORT INFORMATION
  Report Type: 
  Country: None (occurrence: None)
  Receive Date: 20120706
  Receipt Date: 20120222
  Transmission Date: 20120928
  Serious: No
  Sender: FDA-Public Use
  Company Number: US-GLAXOSMITHKLINE-A0966994A

PATIENT
  Age: 30 Year
  Sex: Female

DRUGS (3)
  1. ALBUTEROL [Concomitant]
     Route: 055
  2. METHIMAZOLE [Concomitant]
  3. FLOVENT [Suspect]
     Indication: ASTHMA
     Dosage: 2PUFF TWICE PER DAY
     Route: 055
     Dates: start: 20120201

REACTIONS (3)
  - GLOSSODYNIA [None]
  - DRUG INEFFECTIVE [None]
  - CHEILITIS [None]
